FAERS Safety Report 23260602 (Version 2)
Quarter: 2023Q4

REPORT INFORMATION
  Report Type: Spontaneous
  Country: DE (occurrence: DE)
  Receive Date: 20231205
  Receipt Date: 20231208
  Transmission Date: 20240110
  Serious: Yes (Life-Threatening, Hospitalization, Disabling, Other)
  Sender: FDA-Public Use
  Company Number: DE-DCGMA-22198797

PATIENT
  Age: 54 Year
  Sex: Female
  Weight: 94 kg

DRUGS (8)
  1. CARBOPLATIN [Suspect]
     Active Substance: CARBOPLATIN
     Indication: Breast cancer
     Dosage: 190 MG ANWENDUNGSDAUER: 30 MINUTEN
     Route: 042
  2. PACLITAXEL [Suspect]
     Active Substance: PACLITAXEL
     Indication: Breast cancer
     Dosage: 168 MG ANWENDUNGSDAUER: 15 MINUTEN
     Route: 042
  3. PEMBROLIZUMAB [Suspect]
     Active Substance: PEMBROLIZUMAB
     Indication: Neoplasm malignant
     Dosage: 200 MG ANWENDUNGSDAUER: 30 MINUTEN
     Route: 042
     Dates: start: 20220510
  4. Cimetidin [Concomitant]
     Indication: Adjuvant therapy
     Dosage: 300.000MG
     Route: 042
     Dates: start: 20220518
  5. DEXAMETHASONE [Concomitant]
     Active Substance: DEXAMETHASONE
     Indication: Adjuvant therapy
     Dosage: 8.000MG
     Route: 042
     Dates: start: 20220518
  6. LEVOTHYROXINE SODIUM [Concomitant]
     Active Substance: LEVOTHYROXINE SODIUM
     Indication: Hypothyroidism
     Dosage: 75.000UG QD
     Route: 048
  7. PALONOSETRON [Concomitant]
     Active Substance: PALONOSETRON
     Indication: Adjuvant therapy
     Dosage: 250.000UG
     Route: 042
     Dates: start: 20220518
  8. VALSARTAN [Concomitant]
     Active Substance: VALSARTAN
     Indication: Hypertension
     Dosage: 80.000MG QD
     Route: 048

REACTIONS (4)
  - Acute kidney injury [Not Recovered/Not Resolved]
  - Pancytopenia [Not Recovered/Not Resolved]
  - Hepatitis acute [Not Recovered/Not Resolved]
  - Rhabdomyolysis [Not Recovered/Not Resolved]

NARRATIVE: CASE EVENT DATE: 20220519
